FAERS Safety Report 8179634-7 (Version None)
Quarter: 2012Q1

REPORT INFORMATION
  Report Type: 
  Country: None (occurrence: None)
  Receive Date: 20120229
  Receipt Date: 20120222
  Transmission Date: 20120608
  Serious: Yes (Other)
  Sender: FDA-Public Use
  Company Number: ADR-2012-00429

PATIENT
  Age: 11 Year
  Sex: Male

DRUGS (2)
  1. LIORESAL [Suspect]
     Indication: MUSCLE SPASTICITY
     Dosage: 407.4 MCG/DAY
  2. LIORESAL [Suspect]
     Indication: CEREBRAL PALSY
     Dosage: 407.4 MCG/DAY

REACTIONS (6)
  - MUSCLE SPASMS [None]
  - BACK PAIN [None]
  - DECREASED APPETITE [None]
  - PARAESTHESIA [None]
  - DIZZINESS [None]
  - DEVICE DISLOCATION [None]
